FAERS Safety Report 7088556-4 (Version None)
Quarter: 2010Q4

REPORT INFORMATION
  Report Type: 
  Country: None (occurrence: None)
  Receive Date: 20101108
  Receipt Date: 20101029
  Transmission Date: 20110411
  Serious: Yes (Other)
  Sender: FDA-Public Use
  Company Number: SE-ASTRAZENECA-2010SE43833

PATIENT
  Sex: Female

DRUGS (5)
  1. CRESTOR [Suspect]
     Route: 048
  2. EZETROL [Suspect]
     Dosage: 10 MGX1
     Route: 065
  3. LIPITOR [Concomitant]
  4. ATACAND [Concomitant]
     Route: 048
  5. METFORMIN [Concomitant]

REACTIONS (1)
  - COLON CANCER [None]
